FAERS Safety Report 8924610 (Version 1)
Quarter: 2012Q4

REPORT INFORMATION
  Report Type: 
  Country: US (occurrence: US)
  Receive Date: 20121126
  Receipt Date: 20121126
  Transmission Date: 20130627
  Serious: No
  Sender: FDA-Public Use
  Company Number: US-BRISTOL-MYERS SQUIBB COMPANY-16875932

PATIENT
  Age: 65 Year
  Sex: Male

DRUGS (4)
  1. ONGLYZA TABS [Suspect]
  2. METFORMIN HCL [Suspect]
  3. KOMBIGLYZE XR [Suspect]
     Dosage: 1df=5mg/1000mg
  4. PLAVIX [Suspect]
     Route: 048
     Dates: start: 20100527

REACTIONS (2)
  - Contusion [Unknown]
  - Haemorrhage [Unknown]
